FAERS Safety Report 19190641 (Version 2)
Quarter: 2021Q2

REPORT INFORMATION
  Report Type: Spontaneous
  Country: JP (occurrence: JP)
  Receive Date: 20210428
  Receipt Date: 20210603
  Transmission Date: 20210717
  Serious: Yes (Other)
  Sender: FDA-Public Use
  Company Number: JP-GILEAD-2021-0526762

PATIENT
  Age: 69 Year
  Sex: Male
  Weight: 72 kg

DRUGS (13)
  1. DECADRON [Concomitant]
     Active Substance: DEXAMETHASONE
     Indication: COVID-19
     Dosage: 6 MG, QD
     Route: 048
     Dates: start: 20210420, end: 20210429
  2. PRAVASTATIN SODIUM. [Concomitant]
     Active Substance: PRAVASTATIN SODIUM
     Indication: DYSLIPIDAEMIA
     Dosage: 10 MG, QD
     Route: 048
  3. EPERISONE HYDROCHLORIDE [Concomitant]
     Active Substance: EPERISONE HYDROCHLORIDE
     Indication: LUMBAR SPINAL STENOSIS
     Dosage: 50 MG, BID
     Route: 048
  4. VEKLURY [Suspect]
     Active Substance: REMDESIVIR
     Dosage: 100 MG, QD
     Route: 041
     Dates: start: 20210422, end: 20210422
  5. BENZBROMARONE [Concomitant]
     Active Substance: BENZBROMARONE
     Indication: HYPERURICAEMIA
     Dosage: 25 MG, QD
     Route: 048
  6. MECOBALAMIN [Concomitant]
     Active Substance: METHYLCOBALAMIN
     Indication: LUMBAR SPINAL STENOSIS
     Dosage: 500 UG, BID
     Route: 048
  7. VEKLURY [Suspect]
     Active Substance: REMDESIVIR
     Indication: COVID-19
     Dosage: 200 MG, QD
     Route: 041
     Dates: start: 20210421, end: 20210421
  8. POTOREND [Concomitant]
     Indication: HYPERURICAEMIA
     Dosage: 2 DOSAGE FORM, QD
     Route: 048
  9. TERAMURO [Concomitant]
     Indication: HYPERTENSION
     Dosage: 1 DOSAGE FORM, QD
     Route: 048
  10. LYRICA [Concomitant]
     Active Substance: PREGABALIN
     Indication: LUMBAR SPINAL STENOSIS
     Dosage: 75 MG, BID
     Route: 048
  11. MEDICON [DEXTROMETHORPHAN HYDROBROMIDE] [Concomitant]
     Active Substance: DEXTROMETHORPHAN HYDROBROMIDE
     Indication: COVID-19
     Dosage: 30 MG, TID
     Route: 048
     Dates: start: 20210415, end: 20210426
  12. LIMAPROST ALFADEX [Concomitant]
     Active Substance: LIMAPROST
     Indication: LUMBAR SPINAL STENOSIS
     Dosage: 5 UG, BID
     Route: 048
  13. REBAMIPIDE [Concomitant]
     Active Substance: REBAMIPIDE
     Indication: LUMBAR SPINAL STENOSIS
     Dosage: 100 MG, BID
     Route: 048

REACTIONS (1)
  - Drug-induced liver injury [Recovering/Resolving]

NARRATIVE: CASE EVENT DATE: 20210422
